FAERS Safety Report 5640792-7 (Version None)
Quarter: 2008Q1

REPORT INFORMATION
  Report Type: 
  Country: None (occurrence: None)
  Receive Date: 20080227
  Receipt Date: 20080215
  Transmission Date: 20080703
  Serious: Yes (Hospitalization)
  Sender: FDA-Public Use
  Company Number: US-ELI_LILLY_AND_COMPANY-US200712005257

PATIENT
  Sex: Female

DRUGS (4)
  1. FORTEO [Suspect]
     Indication: OSTEOPOROSIS
     Dosage: UNK, UNK
     Dates: start: 20070101
  2. FORTEO [Suspect]
     Dosage: UNK, UNK
  3. FORTEO [Suspect]
     Dosage: UNK, UNK
     Dates: end: 20080125
  4. VERAPAMIL [Concomitant]

REACTIONS (10)
  - ASTHENIA [None]
  - DYSPNOEA [None]
  - FEAR [None]
  - FEELING ABNORMAL [None]
  - HOSPITALISATION [None]
  - INCORRECT ROUTE OF DRUG ADMINISTRATION [None]
  - INFLUENZA LIKE ILLNESS [None]
  - MALAISE [None]
  - PRESYNCOPE [None]
  - VISUAL DISTURBANCE [None]
